FAERS Safety Report 11571609 (Version 1)
Quarter: 2015Q3

REPORT INFORMATION
  Report Type: Spontaneous
  Country: US (occurrence: US)
  Receive Date: 20150929
  Receipt Date: 20150929
  Transmission Date: 20151125
  Serious: No
  Sender: FDA-Public Use
  Company Number: US-SA-2015SA108492

PATIENT
  Age: 28 Year
  Sex: Female

DRUGS (6)
  1. PRENATAL [Concomitant]
     Active Substance: VITAMINS
  2. COPAXONE [Concomitant]
     Active Substance: GLATIRAMER ACETATE
  3. AVONEX [Concomitant]
     Active Substance: INTERFERON BETA-1A
  4. AUBAGIO [Suspect]
     Active Substance: TERIFLUNOMIDE
     Indication: MULTIPLE SCLEROSIS
     Route: 048
     Dates: start: 201409, end: 2015
  5. NEURONTIN [Concomitant]
     Active Substance: GABAPENTIN
     Route: 048
  6. EXCEDRIN [Concomitant]
     Active Substance: ACETAMINOPHEN\ASPIRIN\CAFFEINE
     Dosage: 250 MG-250 MG-65 MG 2 TABLETS 1X

REACTIONS (1)
  - Exposure during pregnancy [Unknown]

NARRATIVE: CASE EVENT DATE: 2015
